FAERS Safety Report 5740661-8 (Version None)
Quarter: 2008Q2

REPORT INFORMATION
  Report Type: 
  Country: None (occurrence: None)
  Receive Date: 20080516
  Receipt Date: 20080514
  Transmission Date: 20081010
  Serious: Yes (Hospitalization)
  Sender: FDA-Public Use
  Company Number: D0057306A

PATIENT
  Age: 78 Year
  Sex: Female
  Weight: 51.5 kg

DRUGS (3)
  1. AUGMENTIN '125' [Suspect]
     Indication: PNEUMONIA
     Dosage: 6.6G PER DAY
     Route: 048
     Dates: start: 20080109, end: 20080112
  2. ANTIPYRETIC [Concomitant]
     Indication: FEBRILE INFECTION
     Route: 065
     Dates: start: 20080109
  3. ELECTROLYTES [Concomitant]
     Route: 042
     Dates: start: 20080109

REACTIONS (3)
  - ANAEMIA [None]
  - NEUTROPENIA [None]
  - THROMBOCYTOPENIA [None]
